FAERS Safety Report 11419625 (Version 1)
Quarter: 2015Q3

REPORT INFORMATION
  Report Type: Other
  Country: FR (occurrence: FR)
  Receive Date: 20150826
  Receipt Date: 20150826
  Transmission Date: 20151125
  Serious: Yes (Hospitalization)
  Sender: FDA-Public Use
  Company Number: FR-ACTELION-A-CH2015-122812

PATIENT
  Age: 56 Year
  Sex: Female

DRUGS (4)
  1. TRACLEER [Suspect]
     Active Substance: BOSENTAN
     Indication: PORTOPULMONARY HYPERTENSION
     Dosage: 125 MG, BID
     Route: 048
  2. TADALAFIL [Concomitant]
     Active Substance: TADALAFIL
     Dosage: 40 MG, QD
  3. EPOPROSTENOL. [Suspect]
     Active Substance: EPOPROSTENOL
     Indication: PORTOPULMONARY HYPERTENSION
     Route: 042
  4. TREPROSTINIL [Concomitant]
     Active Substance: TREPROSTINIL
     Route: 058

REACTIONS (6)
  - Aortic valve replacement [Recovered/Resolved]
  - Cardiac failure [Recovered/Resolved]
  - Staphylococcal sepsis [Recovered/Resolved]
  - Endocarditis [Recovered/Resolved]
  - Aortic valve incompetence [Recovered/Resolved]
  - Device related sepsis [Recovered/Resolved]
